FAERS Safety Report 5707779-7 (Version None)
Quarter: 2008Q2

REPORT INFORMATION
  Report Type: 
  Country: None (occurrence: None)
  Receive Date: 20080417
  Receipt Date: 20080411
  Transmission Date: 20081010
  Serious: Yes (Other)
  Sender: FDA-Public Use
  Company Number: CN-BRISTOL-MYERS SQUIBB COMPANY-14149967

PATIENT
  Age: 7 Decade
  Sex: Male

DRUGS (2)
  1. IRBESARTAN [Suspect]
     Indication: HYPERTENSION
     Dosage: REDUCED TO 75MG QD IN JAN08; INCREASED TO 150MG QD IN FEB08; AGAIN REDUCED TO 75MG QD FEB'08-ONGOING
     Route: 048
     Dates: start: 20040101
  2. AMLODIPINE [Concomitant]
     Indication: HYPERTENSION
     Route: 048
     Dates: start: 20040101

REACTIONS (1)
  - THROMBOCYTOPENIA [None]
